FAERS Safety Report 17953323 (Version 1)
Quarter: 2020Q2

REPORT INFORMATION
  Report Type: Spontaneous
  Country: US (occurrence: US)
  Receive Date: 20200628
  Receipt Date: 20200628
  Transmission Date: 20200714
  Serious: No
  Sender: FDA-Public Use
  Company Number: US-LEO PHARMA-330264

PATIENT
  Sex: Male

DRUGS (1)
  1. PROTOPIC [Suspect]
     Active Substance: TACROLIMUS
     Indication: PRODUCT USED FOR UNKNOWN INDICATION
     Route: 061

REACTIONS (1)
  - Skin discolouration [Not Recovered/Not Resolved]
